FAERS Safety Report 15900988 (Version 3)
Quarter: 2019Q2

REPORT INFORMATION
  Report Type: Spontaneous
  Country: DE (occurrence: DE)
  Receive Date: 20190201
  Receipt Date: 20190503
  Transmission Date: 20190711
  Serious: Yes (Hospitalization)
  Sender: FDA-Public Use
  Company Number: DE-ALLERGAN-1902150US

PATIENT
  Sex: Female

DRUGS (2)
  1. BOTOX [Suspect]
     Active Substance: ONABOTULINUMTOXINA
     Indication: URGE INCONTINENCE
     Dosage: 100 UNITS, SINGLE
     Route: 043
     Dates: start: 20181116, end: 20181116
  2. BOTOX [Suspect]
     Active Substance: ONABOTULINUMTOXINA
     Indication: HYPERTONIC BLADDER

REACTIONS (10)
  - Urinary tract infection [Unknown]
  - Pseudodiverticular disease [Unknown]
  - Product administered at inappropriate site [Unknown]
  - Abdominal pain lower [Unknown]
  - Urinary incontinence [Not Recovered/Not Resolved]
  - Detrusor sphincter dyssynergia [Not Recovered/Not Resolved]
  - Kidney congestion [Unknown]
  - Incorrect route of product administration [Unknown]
  - Urinary retention [Not Recovered/Not Resolved]
  - Haematuria [Unknown]

NARRATIVE: CASE EVENT DATE: 20181120
